FAERS Safety Report 20865191 (Version 1)
Quarter: 2022Q2

REPORT INFORMATION
  Report Type: Spontaneous
  Country: JP (occurrence: JP)
  Receive Date: 20220524
  Receipt Date: 20220524
  Transmission Date: 20220721
  Serious: Yes (Other)
  Sender: FDA-Public Use
  Company Number: JP-SUN PHARMACEUTICAL INDUSTRIES LTD-2022RR-337869

PATIENT
  Age: 84 Year
  Sex: Female

DRUGS (2)
  1. CILOSTAZOL [Suspect]
     Active Substance: CILOSTAZOL
     Indication: Arteriosclerosis coronary artery
     Dosage: 100 MILLIGRAM, DAILY
     Route: 065
  2. DULOXETINE [Suspect]
     Active Substance: DULOXETINE
     Indication: Osteoarthritis
     Dosage: 40 MILLIGRAM, DAILY
     Route: 065

REACTIONS (3)
  - Ventricular fibrillation [Unknown]
  - Electrocardiogram QT prolonged [Recovering/Resolving]
  - Loss of consciousness [Unknown]
